FAERS Safety Report 7129217-2 (Version None)
Quarter: 2010Q4

REPORT INFORMATION
  Report Type: 
  Country: None (occurrence: None)
  Receive Date: 20101130
  Receipt Date: 20101117
  Transmission Date: 20110411
  Serious: Yes (Hospitalization)
  Sender: FDA-Public Use
  Company Number: IT-ASTRAZENECA-2010SE54281

PATIENT
  Age: 65 Year
  Sex: Female

DRUGS (10)
  1. TENORMIN [Suspect]
     Indication: HYPERTENSION
  2. EXELON [Interacting]
     Indication: DEMENTIA
  3. KEPPRA [Concomitant]
  4. MONOPRIL [Concomitant]
  5. NORVASC [Concomitant]
  6. LONITEN [Concomitant]
  7. ASPIRIN [Concomitant]
  8. PLAVIX [Concomitant]
  9. LASIX [Concomitant]
  10. LEXAPRO [Concomitant]

REACTIONS (4)
  - DRUG INTERACTION [None]
  - SINUS ARREST [None]
  - SINUS BRADYCARDIA [None]
  - SYNCOPE [None]
